FAERS Safety Report 15012994 (Version 2)
Quarter: 2018Q2

REPORT INFORMATION
  Report Type: Report from Study
  Country: GB (occurrence: GB)
  Receive Date: 20180614
  Receipt Date: 20180622
  Transmission Date: 20180711
  Serious: Yes (Hospitalization)
  Sender: FDA-Public Use
  Company Number: GB-PFIZER INC-2018230472

PATIENT
  Age: 63 Year
  Sex: Male
  Weight: 52.7 kg

DRUGS (3)
  1. FOSTAIR [Concomitant]
     Active Substance: BECLOMETHASONE\FORMOTEROL
     Indication: ASTHMA
     Dosage: 106 UG, 2X/DAY
     Route: 055
     Dates: start: 2008
  2. PALBOCICLIB [Suspect]
     Active Substance: PALBOCICLIB
     Indication: NON-SMALL CELL LUNG CANCER
     Dosage: 125 MG, ONCE DAILY, CYCLE 1
     Route: 048
     Dates: start: 20180516, end: 20180531
  3. SALBUTAMOL ACCUHALER [Concomitant]
     Indication: ASTHMA
     Dosage: 200 UG, AS NEEDED
     Route: 055
     Dates: start: 2008

REACTIONS (1)
  - Nausea [Recovered/Resolved]

NARRATIVE: CASE EVENT DATE: 20180531
